FAERS Safety Report 6397472-2 (Version None)
Quarter: 2009Q4

REPORT INFORMATION
  Report Type: 
  Country: None (occurrence: None)
  Receive Date: 20091012
  Receipt Date: 20090928
  Transmission Date: 20100525
  Serious: Yes (Other)
  Sender: FDA-Public Use
  Company Number: AT-GENENTECH-291569

PATIENT
  Sex: Female

DRUGS (3)
  1. AVASTIN [Suspect]
     Indication: BREAST CANCER
     Dosage: 15 MG/KG, Q21D
     Route: 042
  2. CAPECITABINE [Suspect]
     Indication: BREAST CANCER
     Dosage: 950 MG/M2, BID
     Route: 048
  3. TAXOTERE [Suspect]
     Indication: BREAST CANCER
     Dosage: 75 MG/M2, Q21D
     Route: 042

REACTIONS (7)
  - DEEP VEIN THROMBOSIS [None]
  - FEBRILE NEUTROPENIA [None]
  - GENERAL PHYSICAL HEALTH DETERIORATION [None]
  - INTESTINAL PERFORATION [None]
  - LEUKOPENIA [None]
  - NEUTROPENIC INFECTION [None]
  - PALMAR-PLANTAR ERYTHRODYSAESTHESIA SYNDROME [None]
